FAERS Safety Report 17025068 (Version 1)
Quarter: 2019Q4

REPORT INFORMATION
  Report Type: Spontaneous
  Country: US (occurrence: US)
  Receive Date: 20191009
  Receipt Date: 20191009
  Transmission Date: 20200122
  Serious: No
  Sender: FDA-Public Use
  Company Number: None

PATIENT
  Age: 35 Year
  Sex: Female

DRUGS (1)
  1. HUMIRA [Suspect]
     Active Substance: ADALIMUMAB
     Dosage: ?          OTHER FREQUENCY:EVERY14 DAYS ;?
     Route: 058

REACTIONS (6)
  - Arthralgia [None]
  - Product formulation issue [None]
  - Neck pain [None]
  - Pain in extremity [None]
  - Swelling [None]
  - Joint swelling [None]

NARRATIVE: CASE EVENT DATE: 20190720
